FAERS Safety Report 5154834-9 (Version None)
Quarter: 2006Q4

REPORT INFORMATION
  Report Type: 
  Country: None (occurrence: None)
  Receive Date: 20061121
  Receipt Date: 20061114
  Transmission Date: 20070319
  Serious: Yes (Other)
  Sender: FDA-Public Use
  Company Number: US-JNJFOC-20061104101

PATIENT
  Sex: Female
  Weight: 71.67 kg

DRUGS (7)
  1. TOPAMAX [Suspect]
     Route: 048
  2. TOPAMAX [Suspect]
     Route: 048
  3. TOPAMAX [Suspect]
     Route: 048
  4. TOPAMAX [Suspect]
     Indication: MIGRAINE
     Route: 048
  5. ACYCLOVIR [Concomitant]
  6. ACIPHEX [Concomitant]
     Indication: GASTRIC ULCER
  7. MULTI-VITAMIN [Concomitant]

REACTIONS (9)
  - ANOREXIA [None]
  - BLOOD PRESSURE ABNORMAL [None]
  - CHEST PAIN [None]
  - DYSPNOEA [None]
  - FATIGUE [None]
  - HEART RATE INCREASED [None]
  - OXYGEN SATURATION DECREASED [None]
  - PERSONALITY CHANGE [None]
  - TREMOR [None]
